FAERS Safety Report 23586155 (Version 1)
Quarter: 2024Q1

REPORT INFORMATION
  Report Type: Spontaneous
  Country: US (occurrence: None)
  Receive Date: 20240301
  Receipt Date: 20240301
  Transmission Date: 20240409
  Serious: Yes (Hospitalization)
  Sender: FDA-Public Use
  Company Number: None

PATIENT
  Sex: Female

DRUGS (1)
  1. DROXIDOPA [Suspect]
     Active Substance: DROXIDOPA
     Indication: Autonomic neuropathy
     Dosage: 300MG 3 TIMES A DAY ORALLY
     Route: 048
     Dates: start: 202304

REACTIONS (6)
  - Orthostatic hypotension [None]
  - Fall [None]
  - Dizziness [None]
  - Blood pressure increased [None]
  - Rib fracture [None]
  - Therapy non-responder [None]
